FAERS Safety Report 4618357-5 (Version None)
Quarter: 2005Q1

REPORT INFORMATION
  Report Type: 
  Country: None (occurrence: None)
  Receive Date: 20050324
  Receipt Date: 20050304
  Transmission Date: 20050727
  Serious: Yes (Life-Threatening, Hospitalization)
  Sender: FDA-Public Use
  Company Number: DE_050315380

PATIENT
  Age: 79 Year
  Sex: Male

DRUGS (2)
  1. CIALIS [Suspect]
     Indication: ERECTILE DYSFUNCTION
     Dosage: 10 MG AS NEEDED
  2. ACETYLSALICYLIC ACID SRT [Concomitant]

REACTIONS (3)
  - AORTIC STENOSIS [None]
  - CEREBRAL HAEMORRHAGE [None]
  - HYPERTENSION [None]
